FAERS Safety Report 12628769 (Version 1)
Quarter: 2016Q3

REPORT INFORMATION
  Report Type: Other
  Country: DE (occurrence: DE)
  Receive Date: 20160808
  Receipt Date: 20160808
  Transmission Date: 20161109
  Serious: Yes (Other)
  Sender: FDA-Public Use
  Company Number: DE-LUPIN PHARMACEUTICALS INC.-2016-03467

PATIENT
  Age: 31 Year
  Sex: Female
  Weight: 48 kg

DRUGS (3)
  1. SERTRALINE [Suspect]
     Active Substance: SERTRALINE HYDROCHLORIDE
     Indication: ANXIETY DISORDER
     Route: 064
     Dates: start: 20150223, end: 20150929
  2. TAVOR 1,0 EXPIDET [Concomitant]
     Indication: PRODUCT USED FOR UNKNOWN INDICATION
     Route: 064
  3. GYNVITAL GRAVIDA [Concomitant]
     Active Substance: HERBALS
     Indication: PROPHYLAXIS OF NEURAL TUBE DEFECT
     Dosage: 0.4 [MG/D ]
     Route: 064

REACTIONS (6)
  - Exposure during pregnancy [Unknown]
  - Hypertension [Unknown]
  - Nausea [Unknown]
  - HELLP syndrome [Unknown]
  - Gastritis [Unknown]
  - Cholestasis [Unknown]
